FAERS Safety Report 5122097-6 (Version None)
Quarter: 2006Q4

REPORT INFORMATION
  Report Type: 
  Country: None (occurrence: None)
  Receive Date: 20061004
  Receipt Date: 20061004
  Transmission Date: 20070319
  Serious: Yes (Death)
  Sender: FDA-Public Use
  Company Number: None

PATIENT
  Age: 34 Year
  Sex: Female
  Weight: 120 kg

DRUGS (8)
  1. LAMIVUDINE [Suspect]
     Indication: HIV INFECTION
     Dosage: 150 MG BID PO
     Route: 048
     Dates: start: 20060217, end: 20060911
  2. STAVUDINE [Suspect]
     Indication: HIV INFECTION
     Dosage: 40 MG BID PO
     Route: 048
     Dates: start: 20060217, end: 20060911
  3. EFAVIRENZ [Suspect]
     Indication: HIV INFECTION
     Dosage: 600 MG NOCTURNAL PO
     Route: 048
     Dates: start: 20060217
  4. BLACK CURRANT OIL [Concomitant]
  5. PETOGEN [Concomitant]
  6. ENALAPRIL MALEATE [Concomitant]
  7. LASIX [Concomitant]
  8. CO-AMOXYCLAV [Concomitant]

REACTIONS (13)
  - BLOOD PRESSURE DIASTOLIC DECREASED [None]
  - BODY TEMPERATURE DECREASED [None]
  - CARDIAC FAILURE [None]
  - CARDIOMEGALY [None]
  - CELLULITIS [None]
  - FATIGUE [None]
  - HEART RATE INCREASED [None]
  - LACTIC ACIDOSIS [None]
  - PULMONARY EMBOLISM [None]
  - PULMONARY OEDEMA [None]
  - SEPSIS [None]
  - VENOUS THROMBOSIS [None]
  - WHITE BLOOD CELL COUNT INCREASED [None]
